FAERS Safety Report 19995353 (Version 1)
Quarter: 2021Q4

REPORT INFORMATION
  Report Type: Spontaneous
  Country: NL (occurrence: NL)
  Receive Date: 20211025
  Receipt Date: 20211025
  Transmission Date: 20220303
  Serious: Yes (Disabling)
  Sender: FDA-Public Use
  Company Number: NL-TAKEDA-2021TUS016230

PATIENT
  Age: 16 Year
  Sex: Female

DRUGS (6)
  1. MESALAMINE [Suspect]
     Active Substance: MESALAMINE
     Indication: Anti-neutrophil cytoplasmic antibody positive vasculitis
     Route: 065
  2. MESALAMINE [Suspect]
     Active Substance: MESALAMINE
     Indication: Colitis ulcerative
  3. AZATHIOPRINE [Suspect]
     Active Substance: AZATHIOPRINE
     Indication: Colitis ulcerative
     Route: 065
  4. INFLIXIMAB [Suspect]
     Active Substance: INFLIXIMAB
     Indication: Colitis ulcerative
     Dosage: 5 MILLIGRAM/KILOGRAM
     Route: 042
  5. INFLIXIMAB [Suspect]
     Active Substance: INFLIXIMAB
     Dosage: 10 MILLIGRAM/KILOGRAM, Q8WEEKS
     Route: 065
  6. METHOTREXATE [Concomitant]
     Active Substance: METHOTREXATE
     Indication: Vasculitis
     Dosage: 20 MILLIGRAM, 1/WEEK
     Route: 048

REACTIONS (5)
  - Microscopic polyangiitis [Recovered/Resolved with Sequelae]
  - Drug level below therapeutic [Recovered/Resolved]
  - C-reactive protein increased [Recovered/Resolved]
  - Overdose [Unknown]
  - Off label use [Unknown]
